FAERS Safety Report 9915712 (Version 1)
Quarter: 2014Q1

REPORT INFORMATION
  Report Type: Spontaneous
  Country: US (occurrence: None)
  Receive Date: 20140219
  Receipt Date: 20140219
  Transmission Date: 20141002
  Serious: No
  Sender: FDA-Public Use
  Company Number: None

PATIENT
  Age: 74 Year
  Sex: Female
  Weight: 56.7 kg

DRUGS (7)
  1. ACTONEL [Suspect]
     Indication: OSTEOPENIA
     Route: 048
     Dates: start: 20130413, end: 20130618
  2. LISINOPRIL [Concomitant]
  3. ATORVASTATIN [Concomitant]
  4. LEVOTHYROXINE [Concomitant]
  5. CALTRATE D [Concomitant]
  6. CENTRUM SILVER [Concomitant]
  7. 81 MG ASPIRIN [Concomitant]

REACTIONS (4)
  - Pelvic fracture [None]
  - Fracture delayed union [None]
  - Gait disturbance [None]
  - Groin pain [None]
